FAERS Safety Report 15776108 (Version 1)
Quarter: 2018Q4

REPORT INFORMATION
  Report Type: Spontaneous
  Country: US (occurrence: US)
  Receive Date: 20181224
  Receipt Date: 20181224
  Transmission Date: 20190205
  Serious: No
  Sender: FDA-Public Use
  Company Number: None

PATIENT

DRUGS (3)
  1. KEPPRA XR [Suspect]
     Active Substance: LEVETIRACETAM
  2. TOPAMAX [Suspect]
     Active Substance: TOPIRAMATE
     Route: 048
  3. LEVETIRACETAM 500MG [Suspect]
     Active Substance: LEVETIRACETAM

REACTIONS (3)
  - Product prescribing error [None]
  - Product dispensing error [None]
  - Product substitution issue [None]
